FAERS Safety Report 6471810-4 (Version None)
Quarter: 2009Q4

REPORT INFORMATION
  Report Type: 
  Country: None (occurrence: None)
  Receive Date: 20091203
  Receipt Date: 20080325
  Transmission Date: 20100525
  Serious: Yes (Hospitalization)
  Sender: FDA-Public Use
  Company Number: US-ELI_LILLY_AND_COMPANY-US200803005826

PATIENT
  Sex: Female

DRUGS (10)
  1. CYMBALTA [Suspect]
     Indication: DEPRESSION
     Dosage: 60 MG, 2/D
     Dates: start: 20050606
  2. CYMBALTA [Suspect]
     Dosage: 60 MG, DAILY (1/D)
  3. TOPAMAX [Concomitant]
  4. ASPIRIN [Concomitant]
     Dosage: 81 MG, UNK
  5. NEXIUM [Concomitant]
  6. TENORMIN [Concomitant]
  7. AMBIEN [Concomitant]
  8. DARVOCET [Concomitant]
  9. CLONAZEPAM [Concomitant]
  10. OXYCONTIN [Concomitant]

REACTIONS (12)
  - ANXIETY [None]
  - DEPRESSION [None]
  - FALL [None]
  - JOINT ARTHROPLASTY [None]
  - JOINT INJURY [None]
  - NEUROGENIC BLADDER [None]
  - NOSOCOMIAL INFECTION [None]
  - OVERDOSE [None]
  - PANIC ATTACK [None]
  - SMALL INTESTINAL OBSTRUCTION [None]
  - STENT PLACEMENT [None]
  - SUICIDAL IDEATION [None]
